FAERS Safety Report 9170922 (Version 6)
Quarter: 2013Q3

REPORT INFORMATION
  Report Type: Spontaneous
  Country: DE (occurrence: None)
  Receive Date: 20130311
  Receipt Date: 20130909
  Transmission Date: 20140515
  Serious: Yes (Hospitalization)
  Sender: FDA-Public Use
  Company Number: ACO_34619_2013

PATIENT
  Age: 63 Year
  Sex: Male

DRUGS (6)
  1. FAMPRIDINE-SR [Suspect]
     Indication: MULTIPLE SCLEROSIS
     Route: 048
     Dates: start: 20120622, end: 20130226
  2. METFORMIN [Concomitant]
  3. NITRENDIPINE [Concomitant]
  4. METOPROLOL (METOPROLOL TARTRATE) [Concomitant]
  5. ASPIRIN (ACETYLSALICYLIC ACID) [Concomitant]
  6. CORTISONE (CORTISONE ACETATE) [Concomitant]

REACTIONS (13)
  - Delirium [None]
  - Grand mal convulsion [None]
  - White blood cell count increased [None]
  - Protein total decreased [None]
  - White blood cells urine positive [None]
  - Red blood cells urine positive [None]
  - Protein urine present [None]
  - Epilepsy [None]
  - Blood glucose increased [None]
  - Specific gravity urine decreased [None]
  - Cerebral arteriosclerosis [None]
  - Epilepsy [None]
  - Abnormal behaviour [None]
